FAERS Safety Report 7417883-3 (Version None)
Quarter: 2011Q2

REPORT INFORMATION
  Report Type: 
  Country: None (occurrence: None)
  Receive Date: 20110415
  Receipt Date: 20110406
  Transmission Date: 20111010
  Serious: Yes (Other)
  Sender: FDA-Public Use
  Company Number: GB-JNJFOC-2010013355

PATIENT
  Sex: Female

DRUGS (3)
  1. NICORETTE INVISIPATCH [Suspect]
     Route: 062
  2. NICORETTE INVISIPATCH [Suspect]
     Indication: SMOKING CESSATION THERAPY
     Dosage: ^1 / 16HOURS^
     Route: 062
  3. NICOTINE [Concomitant]
     Indication: SMOKING CESSATION THERAPY
     Dosage: DAILY DOSE TEXT: UNSPECIFIED
     Route: 055

REACTIONS (3)
  - PRODUCT SUBSTITUTION ISSUE [None]
  - ERYTHEMA [None]
  - PRURITUS [None]
